FAERS Safety Report 5027718-4 (Version None)
Quarter: 2006Q2

REPORT INFORMATION
  Report Type: 
  Country: None (occurrence: None)
  Receive Date: 20060428
  Receipt Date: 20060215
  Transmission Date: 20061013
  Serious: No
  Sender: FDA-Public Use
  Company Number: COT_0414_2006

PATIENT
  Age: 42 Year
  Sex: Female
  Weight: 77.1115 kg

DRUGS (9)
  1. VENTAVIS [Suspect]
     Indication: PULMONARY HYPERTENSION
     Dosage: 5 MCG IH
     Dates: start: 20051111, end: 20051219
  2. VENTAVIS [Suspect]
     Indication: PULMONARY HYPERTENSION
     Dosage: 2.5 MCG 4- 6X/DAY IH
     Dates: start: 20051220, end: 20060215
  3. ZAROXOLYN [Concomitant]
  4. SILDENAFIL [Concomitant]
  5. DIGOXIN [Concomitant]
  6. ZOCOR [Concomitant]
  7. LASIX [Concomitant]
  8. K-DUR 10 [Concomitant]
  9. ADVAIR DISKUS 100/50 [Concomitant]

REACTIONS (2)
  - AGITATION [None]
  - INSOMNIA [None]
